FAERS Safety Report 6526263-4 (Version None)
Quarter: 2009Q4

REPORT INFORMATION
  Report Type: 
  Country: None (occurrence: None)
  Receive Date: 20091228
  Receipt Date: 20091215
  Transmission Date: 20100525
  Serious: Yes (Other)
  Sender: FDA-Public Use
  Company Number: 234697J09USA

PATIENT
  Age: 53 Year
  Sex: Female
  Weight: 84 kg

DRUGS (7)
  1. REBIF [Suspect]
     Indication: MULTIPLE SCLEROSIS
     Dosage: 44 MCG, 3 IN 1 SUBCUTANEOUS
     Route: 058
     Dates: start: 20040830
  2. POTASSIUM (POTASSIUM /00031401/) [Concomitant]
  3. UNSPECIFIED MEDICATIONS (ALL OTHER THERAPEUTIC PRODUCTS) [Concomitant]
  4. ZOLOFT [Concomitant]
  5. BACLOFEN [Concomitant]
  6. VITAMIN B12 [Concomitant]
  7. UNSPECIFIED MEDICATION (ALL OTHER THEAPEUTIC PRODUCTS) [Concomitant]

REACTIONS (2)
  - BREAST DISORDER [None]
  - UTERINE LEIOMYOMA [None]
